FAERS Safety Report 7440220-5 (Version None)
Quarter: 2011Q2

REPORT INFORMATION
  Report Type: 
  Country: None (occurrence: None)
  Receive Date: 20110427
  Receipt Date: 20110421
  Transmission Date: 20111010
  Serious: Yes (Death)
  Sender: FDA-Public Use
  Company Number: US-CELGENEUS-163-21880-11040830

PATIENT
  Sex: Female

DRUGS (19)
  1. AMIODARONE [Concomitant]
     Indication: ATRIAL FIBRILLATION
     Dosage: 200 MILLIGRAM
     Route: 048
  2. TRICOR [Concomitant]
     Dosage: 145 MILLIGRAM
     Route: 065
  3. LASIX [Concomitant]
     Dosage: 20 MILLIGRAM
     Route: 048
  4. LEVAQUIN [Concomitant]
     Dosage: 250 MILLIGRAM
     Route: 048
     Dates: start: 20110319
  5. MUCINEX [Concomitant]
     Dosage: 600 MILLIGRAM
     Route: 065
  6. ALBUTEROL [Concomitant]
     Indication: WHEEZING
     Route: 065
     Dates: start: 20110301
  7. NEXIUM [Concomitant]
     Dosage: 40 MILLIGRAM
     Route: 048
  8. NIACIN [Concomitant]
     Dosage: 750 MILLIGRAM
     Route: 048
  9. NIASPAN [Concomitant]
     Dosage: 750 MILLIGRAM
     Route: 065
  10. REVLIMID [Suspect]
     Indication: MYELODYSPLASTIC SYNDROME
     Dosage: 15 MILLIGRAM
     Route: 048
     Dates: start: 20110318, end: 20110323
  11. LEVOTHYROXINE SODIUM [Concomitant]
     Dosage: 125 MICROGRAM
     Route: 048
  12. METOPROLOL [Concomitant]
     Dosage: 25 MILLIGRAM
     Route: 048
  13. WHOLE BLOOD [Concomitant]
     Indication: BLOOD COUNT ABNORMAL
     Dosage: 10 UNITS
     Route: 051
     Dates: start: 20110101
  14. NIASPAN [Concomitant]
     Dosage: 1000 MILLIGRAM
     Route: 065
  15. NEXIUM [Concomitant]
     Dosage: 20 MILLIGRAM
     Route: 048
  16. PLATELETS [Concomitant]
     Dosage: 4 UNITS
     Route: 065
     Dates: start: 20110101
  17. AMIODARONE [Concomitant]
     Dosage: 100 MILLIGRAM
     Route: 048
  18. GEMFIBROZIL [Concomitant]
     Dosage: 600 MILLIGRAM
     Route: 048
  19. LIDOCAINE [Concomitant]
     Route: 061

REACTIONS (3)
  - CARDIAC ARREST [None]
  - CARDIAC FAILURE CONGESTIVE [None]
  - MYELODYSPLASTIC SYNDROME [None]
